FAERS Safety Report 7101257-9 (Version None)
Quarter: 2010Q4

REPORT INFORMATION
  Report Type: 
  Country: None (occurrence: None)
  Receive Date: 20101115
  Receipt Date: 20101103
  Transmission Date: 20110411
  Serious: Yes (Other)
  Sender: FDA-Public Use
  Company Number: JP-TYCO HEALTHCARE/MALLINCKRODT-T201002238

PATIENT

DRUGS (3)
  1. OPTIRAY 350 [Suspect]
     Indication: ARTERIOGRAM CORONARY
     Dosage: UNK
  2. SODIUM BICARBONATE [Concomitant]
     Indication: ARTERIOGRAM CORONARY
     Dosage: 3 ML/KG FOR 1 HOUR PRIOR TO ANGIOGRAPHY
  3. SODIUM BICARBONATE [Concomitant]
     Dosage: 1 ML/KG/HR DURING PROCEDURE AND FOR FOUR HOURS AFTER PROCEDURE

REACTIONS (1)
  - NEPHROPATHY [None]
